FAERS Safety Report 25098966 (Version 1)
Quarter: 2025Q1

REPORT INFORMATION
  Report Type: Spontaneous
  Country: US (occurrence: US)
  Receive Date: 20250320
  Receipt Date: 20250320
  Transmission Date: 20250409
  Serious: No
  Sender: BRISTOL-MYERS SQUIBB COMPANY
  Company Number: US-BRISTOL-MYERS SQUIBB COMPANY-2025-041390

PATIENT
  Age: 72 Year
  Sex: Male
  Weight: 107.05 kg

DRUGS (3)
  1. POMALYST [Suspect]
     Active Substance: POMALIDOMIDE
     Indication: Kaposi^s sarcoma
     Route: 048
     Dates: start: 20240201
  2. POMALYST [Suspect]
     Active Substance: POMALIDOMIDE
     Dosage: STRENGTH: 2MG
     Route: 048
     Dates: start: 20240201
  3. POMALYST [Suspect]
     Active Substance: POMALIDOMIDE

REACTIONS (1)
  - White blood cell count decreased [Unknown]
